FAERS Safety Report 15756882 (Version 1)
Quarter: 2018Q4

REPORT INFORMATION
  Report Type: Spontaneous
  Country: US (occurrence: US)
  Receive Date: 20181223
  Receipt Date: 20181223
  Transmission Date: 20190205
  Serious: Yes (Hospitalization)
  Sender: FDA-Public Use
  Company Number: None

PATIENT
  Age: 42 Year
  Sex: Female
  Weight: 77.4 kg

DRUGS (4)
  1. OSELTAMIVIR PHOSPHATE CAPSULES MDC 47781-470-13, USP, 75 MG [Suspect]
     Active Substance: OSELTAMIVIR PHOSPHATE
     Indication: INFLUENZA
     Dosage: ?          QUANTITY:1 CAPSULE(S);?
     Route: 048
     Dates: start: 20181220, end: 20181221
  2. TAMIFLU [Concomitant]
     Active Substance: OSELTAMIVIR PHOSPHATE
  3. CONJULEAN [Concomitant]
  4. GINGER. [Concomitant]
     Active Substance: GINGER

REACTIONS (5)
  - Bronchitis [None]
  - Palpitations [None]
  - Feeling abnormal [None]
  - Mobility decreased [None]
  - Seizure [None]

NARRATIVE: CASE EVENT DATE: 20181220
